FAERS Safety Report 23794536 (Version 1)
Quarter: 2024Q2

REPORT INFORMATION
  Report Type: Spontaneous
  Country: US (occurrence: None)
  Receive Date: 20240426
  Receipt Date: 20240426
  Transmission Date: 20240716
  Serious: Yes (Hospitalization)
  Sender: FDA-Public Use
  Company Number: None

PATIENT
  Age: 70 Year
  Sex: Male

DRUGS (2)
  1. TECHNETIUM TC-99M [Suspect]
     Active Substance: TECHNETIUM TC-99M
     Dates: end: 20230530
  2. LISINOPRIL [Suspect]
     Active Substance: LISINOPRIL
     Indication: Hypertension
     Dosage: FREQUENCY : DAILY;?
     Route: 048
     Dates: start: 20221220, end: 20230601

REACTIONS (3)
  - Angioedema [None]
  - Hospitalisation [None]
  - Palatal oedema [None]

NARRATIVE: CASE EVENT DATE: 20230521
